FAERS Safety Report 12699171 (Version 3)
Quarter: 2017Q4

REPORT INFORMATION
  Report Type: Spontaneous
  Country: US (occurrence: US)
  Receive Date: 20160830
  Receipt Date: 20171206
  Transmission Date: 20180320
  Serious: No
  Sender: FDA-Public Use
  Company Number: US-PFIZER INC-2016406265

PATIENT
  Age: 69 Year
  Sex: Female
  Weight: 91 kg

DRUGS (10)
  1. CITALOPRAM [Concomitant]
     Active Substance: CITALOPRAM HYDROBROMIDE
     Indication: DEPRESSION
     Dosage: 20 MG, 1X/DAY
     Route: 048
  2. LANTUS [Concomitant]
     Active Substance: INSULIN GLARGINE
     Dosage: 55 IU, DAILY(AT BEDTIME)
     Route: 058
     Dates: start: 201711
  3. VITAMIN D3 [Concomitant]
     Active Substance: CHOLECALCIFEROL
     Dosage: 5000 IU, DAILY
     Route: 048
  4. NYSTATIN. [Concomitant]
     Active Substance: NYSTATIN
     Dosage: 100,000 UNIT/GRAM, APPLY TO AFFECTED AREAS 2X/DAY
     Route: 061
     Dates: start: 201711
  5. APIDRA SOLOSTAR [Concomitant]
     Active Substance: INSULIN GLULISINE
     Dosage: 15 IU, 3X/DAY (BEFORE MEAL)
     Route: 058
     Dates: start: 201711
  6. LYRICA [Suspect]
     Active Substance: PREGABALIN
     Indication: DIABETIC NEUROPATHY
     Dosage: 50 MG, 3X/DAY
     Route: 048
     Dates: start: 2015
  7. LANCUS [Concomitant]
     Indication: DIABETES MELLITUS
     Dosage: 50 IU, 1X/DAY EVERY NIGHT
  8. ATORVASTATIN [Concomitant]
     Active Substance: ATORVASTATIN
     Dosage: 10 MG, DAILY
     Route: 048
  9. ASPIR 81 [Concomitant]
     Dosage: UNK, DAILY (1)
     Route: 048
  10. VERAPAMIL ER [Concomitant]
     Active Substance: VERAPAMIL HYDROCHLORIDE
     Indication: CEREBROVASCULAR ACCIDENT PROPHYLAXIS
     Dosage: 240 MG, 1X/DAY
     Route: 048

REACTIONS (3)
  - Burning sensation [Unknown]
  - Drug effect incomplete [Not Recovered/Not Resolved]
  - Pain [Unknown]
